FAERS Safety Report 4731684-6 (Version None)
Quarter: 2005Q3

REPORT INFORMATION
  Report Type: 
  Country: None (occurrence: None)
  Receive Date: 20050725
  Receipt Date: 20050503
  Transmission Date: 20060218
  Serious: Yes (Other)
  Sender: FDA-Public Use
  Company Number: WAES 0505USA00356

PATIENT
  Age: 74 Year
  Sex: Male
  Weight: 77.1115 kg

DRUGS (3)
  1. VIOXX [Suspect]
     Dosage: UNK/UNK/PO
     Route: 048
  2. ASPIRIN [Suspect]
     Indication: PROPHYLAXIS
     Dosage: 81 MG/UNK/PO
     Route: 048
  3. TOPROL-XL [Concomitant]

REACTIONS (1)
  - GASTRIC ULCER [None]
